FAERS Safety Report 17744646 (Version 1)
Quarter: 2020Q2

REPORT INFORMATION
  Report Type: Spontaneous
  Country: US (occurrence: US)
  Receive Date: 20200505
  Receipt Date: 20200505
  Transmission Date: 20200714
  Serious: Yes (Other)
  Sender: FDA-Public Use
  Company Number: US-AMERICAN REGENT INC-2020000967

PATIENT
  Age: 22 Year
  Sex: Female

DRUGS (5)
  1. MAGNESIUM [Concomitant]
     Active Substance: MAGNESIUM
     Indication: SEIZURE
     Route: 042
  2. MAGNESIUM [Concomitant]
     Active Substance: MAGNESIUM
     Indication: BLOOD PRESSURE MANAGEMENT
  3. MANGANESE SULFATE INJECTION, USP (6410-25) [Suspect]
     Active Substance: MANGANESE SULFATE
     Indication: PARENTERAL NUTRITION
     Route: 051
  4. PHENYTOIN SODIUM INJECTION (40042-009-02) [Concomitant]
     Active Substance: PHENYTOIN SODIUM
     Indication: BLOOD PRESSURE MANAGEMENT
  5. PHENYTOIN SODIUM INJECTION (40042-009-02) [Concomitant]
     Active Substance: PHENYTOIN SODIUM
     Indication: SEIZURE
     Route: 042

REACTIONS (1)
  - Toxic encephalopathy [Recovered/Resolved]
